FAERS Safety Report 4867244-6 (Version None)
Quarter: 2005Q4

REPORT INFORMATION
  Report Type: 
  Country: None (occurrence: None)
  Receive Date: 20051227
  Receipt Date: 20051227
  Transmission Date: 20060501
  Serious: No
  Sender: FDA-Public Use
  Company Number: None

PATIENT
  Sex: Male

DRUGS (3)
  1. CISAPRIDE  COMPOUNDING [Suspect]
     Indication: ASTHMA
     Dosage: 1 TSP 4 TIMES A DAY PO
     Route: 048
     Dates: start: 19940930, end: 19970930
  2. CISAPRIDE  COMPOUNDING [Suspect]
     Indication: GASTROOESOPHAGEAL REFLUX DISEASE
     Dosage: 1 TSP 4 TIMES A DAY PO
     Route: 048
     Dates: start: 19940930, end: 19970930
  3. CISAPRIDE  COMPOUNDING [Suspect]
     Indication: IMPAIRED GASTRIC EMPTYING
     Dosage: 1 TSP 4 TIMES A DAY PO
     Route: 048
     Dates: start: 19940930, end: 19970930

REACTIONS (3)
  - DEVELOPMENTAL DELAY [None]
  - DISTURBANCE IN ATTENTION [None]
  - VISUAL DISTURBANCE [None]
